FAERS Safety Report 18471576 (Version 1)
Quarter: 2020Q4

REPORT INFORMATION
  Report Type: Spontaneous
  Country: CN (occurrence: CN)
  Receive Date: 20201106
  Receipt Date: 20201106
  Transmission Date: 20210114
  Serious: Yes (Other)
  Sender: FDA-Public Use
  Company Number: CN-BAXTER-2020BAX022339

PATIENT
  Age: 67 Year
  Sex: Female
  Weight: 46 kg

DRUGS (9)
  1. ENDOXAN [Suspect]
     Active Substance: CYCLOPHOSPHAMIDE
     Indication: BREAST CANCER FEMALE
     Dosage: FIRST CHEMOTHERAPY, ENDOXAN + NS (40 ML)
     Route: 042
     Dates: start: 20200904, end: 20200904
  2. 0.9% SODIUM CHLORIDE INJECTION [Suspect]
     Active Substance: SODIUM CHLORIDE
     Indication: MEDICATION DILUTION
     Dosage: FIRST CHEMOTHERAPY, NS + ENDOXAN (750 MG)
     Route: 042
     Dates: start: 20200904, end: 20200904
  3. 0.9% SODIUM CHLORIDE INJECTION [Suspect]
     Active Substance: SODIUM CHLORIDE
     Dosage: FIRST CHEMOTHERAPY, NS + PHARMORUBICIN (112 MG)
     Route: 041
     Dates: start: 20200904, end: 20200904
  4. XINRUIBAI [Concomitant]
     Indication: PROPHYLAXIS
     Route: 058
     Dates: start: 20200905
  5. PHARMORUBICIN [Suspect]
     Active Substance: EPIRUBICIN
     Indication: BREAST CANCER FEMALE
     Dosage: FIRST CHEMOTHERAPY, PHARMORUBICIN + NS (100 ML)
     Route: 041
     Dates: start: 20200904, end: 20200904
  6. BERDINE [CARBOPLATIN] [Suspect]
     Active Substance: CARBOPLATIN
     Indication: BREAST CANCER FEMALE
     Dosage: FIRST CHEMOTHERAPY, BERDINE + 5% GW (500 ML)
     Route: 041
     Dates: start: 20200904
  7. 5% GLUCOSE  INJECTION [Suspect]
     Active Substance: DEXTROSE
     Indication: MEDICATION DILUTION
     Dosage: FIRST CHEMOTHERAPY , GW + BERDINE (260 MG)
     Route: 041
     Dates: start: 20200904
  8. 0.9% SODIUM CHLORIDE INJECTION [Suspect]
     Active Substance: SODIUM CHLORIDE
     Dosage: FIRST CHEMOTHERAPY, NS + TAXOTERE (80 MG)
     Route: 041
     Dates: start: 20200904
  9. TAXOTERE [Suspect]
     Active Substance: DOCETAXEL
     Indication: BREAST CANCER FEMALE
     Dosage: FIRST CHEMOTHERAPY, TAXOTERE + NS (250 ML)
     Route: 041
     Dates: start: 20200904

REACTIONS (2)
  - Leukopenia [Recovered/Resolved]
  - Agranulocytosis [Recovered/Resolved]

NARRATIVE: CASE EVENT DATE: 20200916
